FAERS Safety Report 5337725-X (Version None)
Quarter: 2007Q2

REPORT INFORMATION
  Report Type: 
  Country: None (occurrence: None)
  Receive Date: 20070524
  Receipt Date: 20070517
  Transmission Date: 20071010
  Serious: Yes (Other)
  Sender: FDA-Public Use
  Company Number: JPI-P-001364

PATIENT
  Age: 43 Year
  Sex: Female

DRUGS (10)
  1. XYREM [Suspect]
     Indication: CATAPLEXY
     Dosage: 7.5 GM (3.75 GM, 2 IN 1 D), ORAL
     Route: 048
     Dates: start: 20070426
  2. TYSABRI [Concomitant]
  3. ABILIFY [Concomitant]
  4. CYMBALTA [Concomitant]
  5. PROVIGIL [Concomitant]
  6. LAMICTAL [Concomitant]
  7. TOPAMAX [Concomitant]
  8. DURAGESIC (FENTANYL) (POULTICE OR PATCH) [Concomitant]
  9. GABAPENTIN [Concomitant]
  10. ADDERALL XR (OBETROL/01345401/) [Concomitant]

REACTIONS (5)
  - CONDITION AGGRAVATED [None]
  - EPILEPSY [None]
  - GRAND MAL CONVULSION [None]
  - MEMORY IMPAIRMENT [None]
  - PETIT MAL EPILEPSY [None]
